FAERS Safety Report 14216279 (Version 2)
Quarter: 2018Q1

REPORT INFORMATION
  Report Type: Spontaneous
  Country: PL (occurrence: PL)
  Receive Date: 20171122
  Receipt Date: 20180107
  Transmission Date: 20180508
  Serious: Yes (Other)
  Sender: FDA-Public Use
  Company Number: PL-TEVA-2017-PL-826111

PATIENT
  Age: 61 Year
  Sex: Male

DRUGS (7)
  1. OXALIPLATIN. [Suspect]
     Active Substance: OXALIPLATIN
     Indication: ADENOCARCINOMA OF COLON
     Dosage: 10 CYCLES
     Route: 065
  2. PREGABALIN. [Suspect]
     Active Substance: PREGABALIN
     Dosage: 2 X 75MG
     Route: 065
  3. TAPENTADOL [Suspect]
     Active Substance: TAPENTADOL
     Indication: PERIPHERAL SENSORY NEUROPATHY
     Dosage: 2 X 50MG (PROLONGED RELEASE); DOSE LATER INCREASED TO 50MG IN THE MORNING AND 100MG IN THE EVENING
     Route: 065
  4. OXYCODONE [Suspect]
     Active Substance: OXYCODONE
     Indication: PERIPHERAL SENSORY NEUROPATHY
     Dosage: 2 X 10MG
     Route: 065
  5. PREGABALIN. [Suspect]
     Active Substance: PREGABALIN
     Indication: PERIPHERAL SENSORY NEUROPATHY
     Dosage: 2 X 150MG; LATER, DOSE REDUCED TO 75MG X 2 DUE TO ADR
     Route: 065
  6. AMITRIPTYLINE [Suspect]
     Active Substance: AMITRIPTYLINE
     Indication: PERIPHERAL SENSORY NEUROPATHY
     Dosage: 1 X 25MG
     Route: 065
  7. TAPENTADOL [Suspect]
     Active Substance: TAPENTADOL
     Dosage: PROLONGED RELEASE; 50MG IN THE MORNING AND 100MG IN THE EVENING
     Route: 065

REACTIONS (9)
  - Sedation complication [Unknown]
  - Peripheral sensory neuropathy [Recovering/Resolving]
  - Disturbance in attention [Unknown]
  - Balance disorder [Unknown]
  - Nausea [Unknown]
  - Vomiting [Unknown]
  - Palpitations [Unknown]
  - Fatigue [Unknown]
  - Constipation [Unknown]
